FAERS Safety Report 6614144-7 (Version None)
Quarter: 2010Q1

REPORT INFORMATION
  Report Type: 
  Country: None (occurrence: None)
  Receive Date: 20100304
  Receipt Date: 20100223
  Transmission Date: 20100710
  Serious: Yes (Life-Threatening, Hospitalization, Other)
  Sender: FDA-Public Use
  Company Number: JP-GENZYME-THYM-1001010

PATIENT
  Sex: Male
  Weight: 73 kg

DRUGS (19)
  1. THYMOGLOBULIN [Suspect]
     Indication: BONE MARROW CONDITIONING REGIMEN
     Dosage: 180 MG, QD
     Route: 042
     Dates: start: 20090216, end: 20090219
  2. FLUDARABINE PHOSPHATE [Concomitant]
     Indication: BONE MARROW CONDITIONING REGIMEN
     Dosage: 30 MG/M2, QD
     Route: 042
     Dates: start: 20090211, end: 20090215
  3. FLUDARABINE PHOSPHATE [Concomitant]
     Indication: APLASTIC ANAEMIA
  4. CYCLOPHOSPHAMIDE [Concomitant]
     Indication: BONE MARROW CONDITIONING REGIMEN
     Dosage: 60 MG/KG, QD
     Route: 042
     Dates: start: 20090214, end: 20090215
  5. CYCLOPHOSPHAMIDE [Concomitant]
     Indication: APLASTIC ANAEMIA
  6. METHYLPREDNISOLONE SODIUM SUCCINATE [Concomitant]
     Indication: BONE MARROW CONDITIONING REGIMEN
     Dosage: 125 MG, UNK
     Route: 065
     Dates: start: 20090216, end: 20090219
  7. METHYLPREDNISOLONE SODIUM SUCCINATE [Concomitant]
     Indication: PREMEDICATION
  8. MEROPENEM TRIHYDRATE [Concomitant]
     Indication: PROCTITIS
     Dosage: 1 G, BID
     Route: 065
     Dates: start: 20090209, end: 20090324
  9. MEROPENEM TRIHYDRATE [Concomitant]
     Indication: INFECTION PROPHYLAXIS
     Dosage: UNK
     Route: 042
     Dates: start: 20090216, end: 20090219
  10. VANCOMYCIN HYDROCHLORIDE [Concomitant]
     Indication: PROCTITIS
     Dosage: 1 G, BID
     Route: 065
     Dates: start: 20090210, end: 20090318
  11. VANCOMYCIN HYDROCHLORIDE [Concomitant]
     Indication: INFECTION PROPHYLAXIS
     Dosage: UNK
     Route: 042
     Dates: start: 20090216, end: 20090219
  12. VALACYCLOVIR [Concomitant]
     Indication: ANTIVIRAL PROPHYLAXIS
     Dosage: UNK
     Route: 048
     Dates: start: 20090217, end: 20090225
  13. LANSOPRAZOLE [Concomitant]
     Dosage: UNK
     Route: 048
     Dates: start: 20090219, end: 20090225
  14. VORICONAZOLE [Concomitant]
     Indication: INFECTION PROPHYLAXIS
     Dosage: UNK
     Route: 048
     Dates: start: 20090219, end: 20090225
  15. ZOLPIDEM TARTRATE [Concomitant]
     Indication: INSOMNIA
     Dosage: UNK
     Dates: start: 20090218, end: 20090219
  16. MAGNESIUM OXIDE [Concomitant]
     Indication: CONSTIPATION
     Dosage: UNK
     Route: 048
     Dates: start: 20090218, end: 20090219
  17. CYCLOSPORINE [Concomitant]
     Indication: PROPHYLAXIS AGAINST GRAFT VERSUS HOST DISEASE
     Dosage: UNK
     Route: 042
     Dates: start: 20090219, end: 20090219
  18. CHLORPHENIRAMINE MALEATE [Concomitant]
     Indication: INFECTION PROPHYLAXIS
     Dosage: UNK
     Route: 042
     Dates: start: 20090220, end: 20090220
  19. HYDROCORTISONE SODIUM SUCCINATE [Concomitant]
     Indication: INFECTION PROPHYLAXIS
     Dosage: UNK
     Dates: start: 20090220, end: 20090220

REACTIONS (5)
  - ENGRAFT FAILURE [None]
  - EPSTEIN-BARR VIRUS ASSOCIATED LYMPHOPROLIFERATIVE DISORDER [None]
  - LIVER DISORDER [None]
  - PLATELET COUNT DECREASED [None]
  - PYREXIA [None]
